FAERS Safety Report 24097504 (Version 1)
Quarter: 2024Q3

REPORT INFORMATION
  Report Type: Spontaneous
  Country: BR (occurrence: BR)
  Receive Date: 20240716
  Receipt Date: 20240716
  Transmission Date: 20241017
  Serious: Yes (Other)
  Sender: SANDOZ
  Company Number: BR-002147023-NVSC2024BR140655

PATIENT
  Sex: Male

DRUGS (5)
  1. ESCITALOPRAM [Suspect]
     Active Substance: ESCITALOPRAM OXALATE
     Indication: Product used for unknown indication
     Dosage: UNK
     Route: 065
  2. METHYLPHENIDATE HYDROCHLORIDE [Suspect]
     Active Substance: METHYLPHENIDATE HYDROCHLORIDE
     Indication: Attention deficit hyperactivity disorder
     Dosage: 10 MG
     Route: 065
  3. FLUVOXAMINE MALEATE [Suspect]
     Active Substance: FLUVOXAMINE MALEATE
     Indication: Product used for unknown indication
     Dosage: UNK
     Route: 065
  4. RITALIN LA [Suspect]
     Active Substance: METHYLPHENIDATE HYDROCHLORIDE
     Indication: Attention deficit hyperactivity disorder
     Dosage: 20 MG
     Route: 065
     Dates: start: 20240221, end: 20240321
  5. BUPROPION HYDROCHLORIDE [Concomitant]
     Active Substance: BUPROPION HYDROCHLORIDE
     Indication: Product used for unknown indication
     Dosage: UNK
     Route: 065

REACTIONS (22)
  - Major depression [Not Recovered/Not Resolved]
  - Urinary retention [Unknown]
  - Product prescribing error [Unknown]
  - Therapeutic response shortened [Unknown]
  - Prescription drug used without a prescription [Not Recovered/Not Resolved]
  - Nightmare [Recovered/Resolved]
  - Alopecia [Unknown]
  - Blood pressure increased [Unknown]
  - Off label use [Unknown]
  - Heart rate irregular [Unknown]
  - Malaise [Unknown]
  - Functional gastrointestinal disorder [Unknown]
  - Peripheral coldness [Recovered/Resolved]
  - Heart rate increased [Unknown]
  - Diarrhoea [Recovered/Resolved]
  - Dermatitis [Unknown]
  - Depression [Unknown]
  - Fatigue [Unknown]
  - Drug intolerance [Recovered/Resolved]
  - Drug ineffective [Unknown]
  - Anxiety [Recovered/Resolved]
  - Insomnia [Recovered/Resolved]
